FAERS Safety Report 5403083-5 (Version None)
Quarter: 2007Q3

REPORT INFORMATION
  Report Type: 
  Country: None (occurrence: None)
  Receive Date: 20070713
  Receipt Date: 20070516
  Transmission Date: 20080115
  Serious: Yes (Hospitalization)
  Sender: FDA-Public Use
  Company Number: US-JNJFOC-20061106648

PATIENT
  Age: 23 Year
  Sex: Female

DRUGS (5)
  1. ORTHO EVRA [Suspect]
     Indication: CONTRACEPTION
     Dosage: 1 DOSE(S), 3 IN 4 WEEK, TRANSDERMAL
     Route: 062
     Dates: start: 20030501, end: 20031101
  2. SINGULAIR [Concomitant]
  3. ALLEGRA-D (ALLEGRA-D) [Concomitant]
  4. ATARAX [Concomitant]
  5. NASAL SPRAY (NASAL DECONGESTANTS FOR SYSTEMIC USE) [Concomitant]

REACTIONS (1)
  - DEEP VEIN THROMBOSIS [None]
